FAERS Safety Report 25193445 (Version 1)
Quarter: 2025Q2

REPORT INFORMATION
  Report Type: Spontaneous
  Country: US (occurrence: US)
  Receive Date: 20250414
  Receipt Date: 20250414
  Transmission Date: 20250716
  Serious: Yes (Other)
  Sender: ALEXION PHARMACEUTICALS
  Company Number: US-AstraZeneca-CH-00843873A

PATIENT

DRUGS (1)
  1. CALQUENCE [Suspect]
     Active Substance: ACALABRUTINIB
     Indication: Chronic lymphocytic leukaemia
     Route: 065

REACTIONS (7)
  - Choking [Unknown]
  - Productive cough [Unknown]
  - Retching [Unknown]
  - Upper respiratory tract congestion [Unknown]
  - White blood cell count abnormal [Unknown]
  - Hypoacusis [Unknown]
  - Secretion discharge [Unknown]
